FAERS Safety Report 12162939 (Version 1)
Quarter: 2016Q1

REPORT INFORMATION
  Report Type: Spontaneous
  Country: NL (occurrence: NL)
  Receive Date: 20160309
  Receipt Date: 20160309
  Transmission Date: 20160526
  Serious: Yes (Other)
  Sender: FDA-Public Use
  Company Number: NL-MEDA-2016020092

PATIENT
  Age: 50 Year
  Sex: Female

DRUGS (1)
  1. OESTRADIOL [Suspect]
     Active Substance: ESTROGENS

REACTIONS (4)
  - Drug-induced liver injury [Recovered/Resolved]
  - Cholestasis [Recovered/Resolved]
  - Jaundice [Recovered/Resolved]
  - Pruritus [Recovered/Resolved]
